FAERS Safety Report 8239399-7 (Version None)
Quarter: 2012Q1

REPORT INFORMATION
  Report Type: 
  Country: None (occurrence: None)
  Receive Date: 20120326
  Receipt Date: 20120313
  Transmission Date: 20120608
  Serious: Yes (Other)
  Sender: FDA-Public Use
  Company Number: FK201200806

PATIENT
  Age: 15 Year
  Sex: Male

DRUGS (2)
  1. PAMIDRONATE DISODIUM [Suspect]
     Indication: OSTEOPOROSIS
     Dosage: 30 MG/M2, MONTHLY FOR 24 MONTHS, INTRAVENOUS (NOT OTHERWISE SPECIFIED)
  2. NATURAL SUPPLEMENT (VITAMINS NOS) [Suspect]
     Indication: PRODUCT USED FOR UNKNOWN INDICATION
     Dosage: VIT D3 320 (8 MCG) IU/DAY

REACTIONS (1)
  - NEPHROCALCINOSIS [None]
